FAERS Safety Report 23457913 (Version 1)
Quarter: 2024Q1

REPORT INFORMATION
  Report Type: Spontaneous
  Country: US (occurrence: US)
  Receive Date: 20240130
  Receipt Date: 20240130
  Transmission Date: 20240409
  Serious: Yes (Other)
  Sender: FDA-Public Use
  Company Number: US-AMGEN-USASP2024015813

PATIENT
  Sex: Female

DRUGS (3)
  1. EVENITY [Suspect]
     Active Substance: ROMOSOZUMAB-AQQG
     Indication: Product used for unknown indication
     Dosage: UNK
     Route: 065
  2. EVENITY [Suspect]
     Active Substance: ROMOSOZUMAB-AQQG
  3. PROLIA [Suspect]
     Active Substance: DENOSUMAB
     Indication: Product used for unknown indication
     Dosage: UNK
     Route: 065

REACTIONS (8)
  - Spinal fracture [Unknown]
  - Intervertebral disc compression [Unknown]
  - Fall [Unknown]
  - Memory impairment [Unknown]
  - Tooth disorder [Unknown]
  - Gingival disorder [Unknown]
  - Dental restoration failure [Unknown]
  - Stress [Unknown]

NARRATIVE: CASE EVENT DATE: 20230101
